FAERS Safety Report 15765997 (Version 1)
Quarter: 2018Q4

REPORT INFORMATION
  Report Type: Spontaneous
  Country: US (occurrence: US)
  Receive Date: 20181227
  Receipt Date: 20181227
  Transmission Date: 20190205
  Serious: No
  Sender: FDA-Public Use
  Company Number: US-SA-2018SA393360

PATIENT
  Age: 38 Year

DRUGS (1)
  1. DUPIXENT [Suspect]
     Active Substance: DUPILUMAB
     Dosage: 1 DF, QOW
     Dates: start: 201808

REACTIONS (2)
  - Injection site paraesthesia [Unknown]
  - Injection site pain [Unknown]

NARRATIVE: CASE EVENT DATE: 20181208
